FAERS Safety Report 4928713-3 (Version None)
Quarter: 2006Q1

REPORT INFORMATION
  Report Type: 
  Country: None (occurrence: None)
  Receive Date: 20060227
  Receipt Date: 20060227
  Transmission Date: 20060701
  Serious: No
  Sender: FDA-Public Use
  Company Number: None

PATIENT
  Age: 28 Year
  Sex: Male
  Weight: 70 kg

DRUGS (2)
  1. PAXIL [Suspect]
     Indication: DEPRESSION
     Dosage: 20 MG DAILY BUCCAL
     Route: 002
     Dates: start: 20010601, end: 20050315
  2. PAXIL [Suspect]
     Indication: SOCIAL PHOBIA
     Dosage: 20 MG DAILY BUCCAL
     Route: 002
     Dates: start: 20010601, end: 20050315

REACTIONS (7)
  - ANGER [None]
  - DEPRESSION [None]
  - DRUG DEPENDENCE [None]
  - DRUG WITHDRAWAL SYNDROME [None]
  - FEELING ABNORMAL [None]
  - INFLUENZA LIKE ILLNESS [None]
  - PANIC ATTACK [None]
